FAERS Safety Report 25711857 (Version 2)
Quarter: 2025Q3

REPORT INFORMATION
  Report Type: Spontaneous
  Country: JP (occurrence: JP)
  Receive Date: 20250821
  Receipt Date: 20250826
  Transmission Date: 20251021
  Serious: Yes (Hospitalization, Other)
  Sender: BRISTOL-MYERS SQUIBB COMPANY
  Company Number: JP-BRISTOL-MYERS SQUIBB COMPANY-2025-089935

PATIENT
  Age: 3 Decade
  Sex: Male

DRUGS (2)
  1. ZEPOSIA [Suspect]
     Active Substance: OZANIMOD HYDROCHLORIDE
     Indication: Colitis ulcerative
     Dosage: STARTER PACK AND NORMAL DOSE
     Route: 048
     Dates: start: 202505
  2. UNSPECIFIED INGREDIENT [Concomitant]
     Active Substance: UNSPECIFIED INGREDIENT
     Indication: Colitis ulcerative

REACTIONS (2)
  - Colitis ulcerative [Recovering/Resolving]
  - Cytomegalovirus enterocolitis [Unknown]

NARRATIVE: CASE EVENT DATE: 20250623
